FAERS Safety Report 24226697 (Version 1)
Quarter: 2024Q3

REPORT INFORMATION
  Report Type: Report from Study
  Country: RU (occurrence: RU)
  Receive Date: 20240820
  Receipt Date: 20240820
  Transmission Date: 20241017
  Serious: Yes (Death, Life-Threatening, Other)
  Sender: ROCHE
  Company Number: US-ROCHE-10000033948

PATIENT

DRUGS (2)
  1. RITUXIMAB [Suspect]
     Active Substance: RITUXIMAB
     Indication: Juvenile idiopathic arthritis
     Route: 042
  2. RITUXIMAB [Suspect]
     Active Substance: RITUXIMAB
     Dosage: 2 INJECTIONS
     Route: 042

REACTIONS (57)
  - Sepsis [Unknown]
  - Pneumonia [Unknown]
  - COVID-19 pneumonia [Fatal]
  - Infusion related reaction [Unknown]
  - Influenza like illness [Unknown]
  - Rash [Unknown]
  - Neutropenia [Unknown]
  - Erythropenia [Unknown]
  - Immunoglobulins decreased [Unknown]
  - Alanine aminotransferase increased [Unknown]
  - Aspartate aminotransferase increased [Unknown]
  - Blood urea increased [Unknown]
  - Off label use [Fatal]
  - Hypogammaglobulinaemia [Unknown]
  - Nausea [Unknown]
  - Vomiting [Unknown]
  - Abdominal pain [Unknown]
  - Headache [Unknown]
  - Hypertension [Unknown]
  - Back pain [Unknown]
  - Throat irritation [Unknown]
  - Oropharyngeal pain [Unknown]
  - Face oedema [Unknown]
  - Oedema mucosal [Unknown]
  - Hypotension [Unknown]
  - Herpes virus infection [Unknown]
  - Herpes zoster [Unknown]
  - Epstein-Barr viraemia [Unknown]
  - Cytomegalovirus infection [Unknown]
  - Varicella [Unknown]
  - Arthritis bacterial [Unknown]
  - Sinusitis [Unknown]
  - Adenoiditis [Unknown]
  - Tonsillitis [Unknown]
  - Oral candidiasis [Unknown]
  - Oesophageal candidiasis [Unknown]
  - Gastrointestinal infection [Unknown]
  - Urinary tract infection [Unknown]
  - Stomatitis [Unknown]
  - Oral infection [Unknown]
  - Respiratory tract infection [Unknown]
  - Genital infection [Unknown]
  - Pulmonary tuberculosis [Unknown]
  - Skin infection [Unknown]
  - Hypersensitivity [Unknown]
  - Asphyxia [Unknown]
  - Cystitis [Unknown]
  - Respiratory disorder [Unknown]
  - Bronchitis [Unknown]
  - Laryngitis [Unknown]
  - Pyelonephritis [Unknown]
  - Gastric ulcer perforation [Unknown]
  - Gastrointestinal haemorrhage [Unknown]
  - Agranulocytosis [Unknown]
  - Neutrophil count decreased [Unknown]
  - Thrombocytopenia [Unknown]
  - Drug ineffective [Unknown]
